FAERS Safety Report 17446372 (Version 2)
Quarter: 2020Q1

REPORT INFORMATION
  Report Type: Spontaneous
  Country: US (occurrence: US)
  Receive Date: 20200221
  Receipt Date: 20200320
  Transmission Date: 20200409
  Serious: Yes (Hospitalization, Other)
  Sender: FDA-Public Use
  Company Number: US-COLLEGIUM PHARMACEUTICAL, INC.-2020CGM00032

PATIENT
  Age: 62 Year
  Sex: Male
  Weight: 102.04 kg

DRUGS (16)
  1. XTAMPZA ER [Suspect]
     Active Substance: OXYCODONE
     Indication: PAIN
     Dosage: 18 MG, 2X/DAY
     Route: 048
     Dates: start: 201812
  2. ACETAMINOPHEN. [Concomitant]
     Active Substance: ACETAMINOPHEN
     Dosage: 1-2 TABLETS, UP TO 4X/DAY (EVERY 6 HOURS) AS NEEDED
     Route: 048
  3. AMLODIPINE [Concomitant]
     Active Substance: AMLODIPINE BESYLATE
     Dosage: 5 MG, 2X/DAY
     Route: 048
  4. ZOLPIDEM [Concomitant]
     Active Substance: ZOLPIDEM TARTRATE
     Dosage: 10 MG, AT BEDTIME AS NEEDED
     Route: 048
  5. INSULIN DEGLUDEC [Concomitant]
     Active Substance: INSULIN DEGLUDEC
     Dosage: ON A SLIDING SCALE
     Dates: end: 201909
  6. SUMATRIPTAN. [Concomitant]
     Active Substance: SUMATRIPTAN
     Dosage: 100 MG, UP TO 2X/DAY AS NEEDED
     Route: 048
  7. ASPIRIN CHEWABLE [Concomitant]
     Active Substance: ASPIRIN
     Dosage: 81 MG, 1X/DAY
     Route: 048
  8. METFORMIN [Concomitant]
     Active Substance: METFORMIN HYDROCHLORIDE
     Dosage: 1000 MG, 2X/DAY
     Route: 048
  9. OXYCODONE [Concomitant]
     Active Substance: OXYCODONE
     Dosage: 10 MG, UP TO 6X/DAY (EVERY 4 HOURS) AS NEEDED
     Route: 048
  10. METOPROLOL. [Concomitant]
     Active Substance: METOPROLOL
     Dosage: 50 MG, 2X/DAY
     Route: 048
  11. INSULIN DEGLUDEC [Concomitant]
     Active Substance: INSULIN DEGLUDEC
     Dosage: 20 U, 1X/DAY
     Dates: start: 20191002
  12. DOCUSATE SODIUM. [Concomitant]
     Active Substance: DOCUSATE SODIUM
     Dosage: 500 MG, 1X/DAY AT BEDTIME
     Route: 048
  13. FOLIC ACID. [Concomitant]
     Active Substance: FOLIC ACID
     Dosage: 0.8 MG, 1X/DAY
     Route: 048
  14. NITROGLYCERIN. [Concomitant]
     Active Substance: NITROGLYCERIN
     Dosage: 0.4 MG, EVERY 5 MINUTES AS NEEDED
     Route: 060
  15. CLOPIDOGREL [Concomitant]
     Active Substance: CLOPIDOGREL BISULFATE
     Dosage: 75 MG, 1X/DAY
     Route: 048
  16. INFLUENZA VACCINE QUAD [Concomitant]
     Dosage: 0.5 ML
     Route: 030
     Dates: start: 20191002, end: 20191002

REACTIONS (11)
  - Respiratory muscle weakness [Not Recovered/Not Resolved]
  - Rhinovirus infection [Unknown]
  - Product substitution issue [Not Recovered/Not Resolved]
  - Acute respiratory failure [Recovering/Resolving]
  - Hilar lymphadenopathy [Not Recovered/Not Resolved]
  - Gallbladder disorder [Unknown]
  - Lymphadenopathy mediastinal [Not Recovered/Not Resolved]
  - Chronic respiratory disease [Not Recovered/Not Resolved]
  - Coronary artery disease [Not Recovered/Not Resolved]
  - Hypoxia [Recovering/Resolving]
  - Ventricular hypokinesia [Not Recovered/Not Resolved]

NARRATIVE: CASE EVENT DATE: 2019
